FAERS Safety Report 21787000 (Version 2)
Quarter: 2023Q1

REPORT INFORMATION
  Report Type: Spontaneous
  Country: JP (occurrence: JP)
  Receive Date: 20221228
  Receipt Date: 20230105
  Transmission Date: 20230418
  Serious: Yes (Other)
  Sender: FDA-Public Use
  Company Number: JP-SA-SAC20221226001564

PATIENT

DRUGS (1)
  1. FERRIC HYDROXIDE [Suspect]
     Active Substance: FERRIC HYDROXIDE
     Indication: Product used for unknown indication
     Dosage: UNK
     Route: 048

REACTIONS (1)
  - Arteriosclerosis coronary artery [Unknown]
